FAERS Safety Report 8765722 (Version 2)
Quarter: 2012Q4

REPORT INFORMATION
  Report Type: 
  Country: US (occurrence: US)
  Receive Date: 20120903
  Receipt Date: 20121016
  Transmission Date: 20130627
  Serious: Yes (Other)
  Sender: FDA-Public Use
  Company Number: US-BAYER-2012-090531

PATIENT
  Age: 43 Year
  Sex: Male
  Weight: 117.91 kg

DRUGS (1)
  1. BETASERON [Suspect]
     Indication: MULTIPLE SCLEROSIS
     Dosage: 0.25 mg, QOD
     Route: 058
     Dates: start: 20120403

REACTIONS (6)
  - Hemiplegia [Not Recovered/Not Resolved]
  - Musculoskeletal stiffness [None]
  - Musculoskeletal pain [None]
  - Back pain [None]
  - Mobility decreased [None]
  - Mobility decreased [None]
